FAERS Safety Report 6342044-9 (Version None)
Quarter: 2009Q3

REPORT INFORMATION
  Report Type: 
  Country: None (occurrence: None)
  Receive Date: 20090903
  Receipt Date: 20090818
  Transmission Date: 20100115
  Serious: Yes (Hospitalization)
  Sender: FDA-Public Use
  Company Number: 002710

PATIENT
  Age: 83 Year
  Sex: Male

DRUGS (1)
  1. MACUGEN [Suspect]
     Indication: MACULAR DEGENERATION
     Dates: start: 20090811, end: 20090811

REACTIONS (3)
  - ENDOPHTHALMITIS [None]
  - PROCEDURAL COMPLICATION [None]
  - VISUAL ACUITY REDUCED [None]
